FAERS Safety Report 20622336 (Version 1)
Quarter: 2022Q1

REPORT INFORMATION
  Report Type: Spontaneous
  Country: US (occurrence: None)
  Receive Date: 20220322
  Receipt Date: 20220322
  Transmission Date: 20220423
  Serious: No
  Sender: FDA-Public Use
  Company Number: None

PATIENT
  Age: 28 Year
  Sex: Male
  Weight: 87.75 kg

DRUGS (4)
  1. LEVOCETIRIZINE DIHYDROCHLORIDE [Suspect]
     Active Substance: LEVOCETIRIZINE DIHYDROCHLORIDE
     Indication: Hypersensitivity
     Dosage: OTHER QUANTITY : 1 TABLET(S);?FREQUENCY : AT BEDTIME;?
     Route: 048
     Dates: start: 20220305, end: 20220312
  2. VITAFUSION MEN^S MULTIVITAMIN GUMMIES [Concomitant]
  3. NOW PSYILLIUM HUSK CAPSULES [Concomitant]
  4. DIPHENHYDRAMINE [Concomitant]
     Active Substance: DIPHENHYDRAMINE

REACTIONS (4)
  - Somnolence [None]
  - Vertigo [None]
  - Confusional state [None]
  - Speech disorder [None]

NARRATIVE: CASE EVENT DATE: 20220308
